FAERS Safety Report 21852115 (Version 5)
Quarter: 2024Q2

REPORT INFORMATION
  Report Type: Report from Study
  Country: US (occurrence: US)
  Receive Date: 20230112
  Receipt Date: 20240618
  Transmission Date: 20240716
  Serious: Yes (Other)
  Sender: FDA-Public Use
  Company Number: US-ABBVIE-4266092

PATIENT
  Sex: Female
  Weight: 67 kg

DRUGS (15)
  1. HUMIRA [Suspect]
     Active Substance: ADALIMUMAB
     Indication: Crohn^s disease
     Dosage: FORM STRENGTH: 40 MILLIGRAM
     Route: 058
     Dates: start: 2001
  2. HUMIRA [Suspect]
     Active Substance: ADALIMUMAB
     Dosage: FORM STRENGTH: 40 MILLIGRAM
     Route: 058
     Dates: start: 20051101
  3. ALPRAZOLAM [Concomitant]
     Active Substance: ALPRAZOLAM
     Indication: Anxiety
  4. IRON [Concomitant]
     Active Substance: IRON
     Indication: Supplementation therapy
  5. LAMOTRIGINE [Concomitant]
     Active Substance: LAMOTRIGINE
     Indication: Seizure
  6. CHOLESTYRAMINE [Concomitant]
     Active Substance: CHOLESTYRAMINE
     Indication: Diarrhoea
  7. FISH OIL [Concomitant]
     Active Substance: FISH OIL
     Indication: Supplementation therapy
  8. PANTOPRAZOLE [Concomitant]
     Active Substance: PANTOPRAZOLE
     Indication: Oesophageal stenosis
  9. PAROXETINE [Concomitant]
     Active Substance: PAROXETINE
     Indication: Restless legs syndrome
  10. SANDOSTATIN [Concomitant]
     Active Substance: OCTREOTIDE ACETATE
     Indication: Diarrhoea
  11. VITAMIN B12 [Concomitant]
     Active Substance: CYANOCOBALAMIN
     Indication: Supplementation therapy
  12. MINERALS\VITAMINS [Concomitant]
     Active Substance: MINERALS\VITAMINS
     Indication: Supplementation therapy
  13. CALCIUM [Concomitant]
     Active Substance: CALCIUM
     Indication: Supplementation therapy
  14. PRAMIPEXOLE [Concomitant]
     Active Substance: PRAMIPEXOLE\PRAMIPEXOLE DIHYDROCHLORIDE
     Indication: Restless legs syndrome
  15. VITAMIN D3 [Concomitant]
     Active Substance: CHOLECALCIFEROL
     Indication: Supplementation therapy

REACTIONS (9)
  - Macular degeneration [Unknown]
  - Chronic kidney disease [Recovering/Resolving]
  - Abdominal infection [Recovered/Resolved]
  - Tongue operation [Recovered/Resolved]
  - Diarrhoea [Not Recovered/Not Resolved]
  - Malabsorption [Recovered/Resolved]
  - Restless legs syndrome [Unknown]
  - Abdominal infection [Recovered/Resolved]
  - Feeling abnormal [Unknown]

NARRATIVE: CASE EVENT DATE: 20040101
